FAERS Safety Report 7580833-3 (Version None)
Quarter: 2011Q2

REPORT INFORMATION
  Report Type: 
  Country: None (occurrence: None)
  Receive Date: 20110629
  Receipt Date: 20110624
  Transmission Date: 20111010
  Serious: Yes (Other)
  Sender: FDA-Public Use
  Company Number: KR-PFIZER INC-2011141406

PATIENT
  Age: 75 Year
  Sex: Male

DRUGS (2)
  1. VIAGRA [Suspect]
     Dosage: 1/4 TABLET
     Route: 048
  2. VIAGRA [Suspect]
     Dosage: 100 MG, 1/2 OR 1/3 TABLET
     Route: 048

REACTIONS (3)
  - EYELID PTOSIS [None]
  - FLUSHING [None]
  - HEADACHE [None]
